FAERS Safety Report 4905979-7 (Version None)
Quarter: 2006Q1

REPORT INFORMATION
  Report Type: 
  Country: None (occurrence: None)
  Receive Date: 20060206
  Receipt Date: 20060124
  Transmission Date: 20060701
  Serious: Yes (Other)
  Sender: FDA-Public Use
  Company Number: 2005148348

PATIENT
  Age: 53 Year
  Sex: Male

DRUGS (2)
  1. VIAGRA [Suspect]
     Indication: ERECTILE DYSFUNCTION
     Dosage: 50 MG (50 MG, AS NECESSARY)
     Dates: start: 20040301
  2. PROPECIA [Concomitant]

REACTIONS (1)
  - PEYRONIE'S DISEASE [None]
